FAERS Safety Report 24165856 (Version 1)
Quarter: 2024Q3

REPORT INFORMATION
  Report Type: Report from Study
  Country: CO (occurrence: None)
  Receive Date: 20240802
  Receipt Date: 20240802
  Transmission Date: 20241016
  Serious: Yes (Hospitalization)
  Sender: ASTRAZENECA
  Company Number: 2023A244263

PATIENT
  Age: 23722 Day
  Sex: Male
  Weight: 65 kg

DRUGS (2)
  1. FASENRA [Suspect]
     Active Substance: BENRALIZUMAB
     Indication: Asthma
     Route: 058
     Dates: start: 20190724
  2. SYMBICORT [Suspect]
     Active Substance: BUDESONIDE\FORMOTEROL FUMARATE DIHYDRATE
     Indication: Asthma
     Dosage: 320.9, EVERY 12 HOURS
     Route: 055
     Dates: start: 20190724

REACTIONS (2)
  - Cholecystitis [Not Recovered/Not Resolved]
  - Biliary obstruction [Not Recovered/Not Resolved]

NARRATIVE: CASE EVENT DATE: 20231023
